FAERS Safety Report 7768281-4 (Version None)
Quarter: 2011Q3

REPORT INFORMATION
  Report Type: 
  Country: None (occurrence: None)
  Receive Date: 20110922
  Receipt Date: 20101116
  Transmission Date: 20111222
  Serious: No
  Sender: FDA-Public Use
  Company Number: US-ASTRAZENECA-2010SE54728

PATIENT
  Age: 10289 Day
  Sex: Female
  Weight: 59 kg

DRUGS (1)
  1. SEROQUEL XR [Suspect]
     Indication: DEPRESSION
     Route: 048
     Dates: start: 20101109, end: 20101113

REACTIONS (3)
  - DEPRESSED MOOD [None]
  - DRUG DOSE OMISSION [None]
  - CRYING [None]
